FAERS Safety Report 7621106-X (Version None)
Quarter: 2011Q3

REPORT INFORMATION
  Report Type: 
  Country: None (occurrence: None)
  Receive Date: 20110719
  Receipt Date: 20100621
  Transmission Date: 20111222
  Serious: No
  Sender: FDA-Public Use
  Company Number: US-KINGPHARMUSA00001-K201000775

PATIENT
  Sex: Female
  Weight: 142 kg

DRUGS (6)
  1. LEVOXYL [Suspect]
     Dosage: 87.5 MCG, QD
     Route: 048
     Dates: start: 20100501, end: 20100601
  2. XANAX [Concomitant]
     Indication: PROPHYLAXIS
     Dosage: UNK
  3. LEVOXYL [Suspect]
     Dosage: 100 MCG, QD
     Route: 048
     Dates: start: 20100620
  4. LEVOXYL [Suspect]
     Indication: HYPOTHYROIDISM
     Dosage: 175 MCG, QD
     Route: 048
     Dates: start: 20100501, end: 20100501
  5. LEVOXYL [Suspect]
     Dosage: 88 MCG, QD
     Route: 048
     Dates: start: 20100601, end: 20100619
  6. LEVOXYL [Suspect]
     Dosage: 175 MCG, QD
     Route: 048
     Dates: start: 20100601, end: 20100601

REACTIONS (7)
  - ORAL DISCOMFORT [None]
  - FATIGUE [None]
  - RETCHING [None]
  - DRUG INEFFECTIVE [None]
  - DIARRHOEA [None]
  - HYPOTHYROIDISM [None]
  - DIZZINESS [None]
